FAERS Safety Report 8428828-1 (Version None)
Quarter: 2012Q2

REPORT INFORMATION
  Report Type: 
  Country: None (occurrence: None)
  Receive Date: 20120612
  Receipt Date: 20120605
  Transmission Date: 20120825
  Serious: Yes (Hospitalization)
  Sender: FDA-Public Use
  Company Number: 2012SP001522

PATIENT
  Age: 64 Year
  Sex: Male

DRUGS (1)
  1. OMNARIS [Suspect]
     Indication: PRODUCT USED FOR UNKNOWN INDICATION
     Route: 045
     Dates: start: 20120501, end: 20120501

REACTIONS (2)
  - VOMITING [None]
  - DIZZINESS [None]
